FAERS Safety Report 9636795 (Version 2)
Quarter: 2013Q4

REPORT INFORMATION
  Report Type: Spontaneous
  Country: DE (occurrence: DE)
  Receive Date: 20131022
  Receipt Date: 20131125
  Transmission Date: 20140711
  Serious: Yes (Hospitalization, Other)
  Sender: FDA-Public Use
  Company Number: DE-AMGEN-DEUSP2013073241

PATIENT
  Age: 81 Year
  Sex: Male

DRUGS (2)
  1. XGEVA [Suspect]
     Indication: PROSTATE CANCER METASTATIC
     Dosage: 120 MG, Q4WK
     Route: 058
     Dates: start: 20111213, end: 20130325
  2. BUSERELIN ACETATE [Concomitant]
     Indication: HORMONE THERAPY
     Dosage: 9.9 MG, Q3MO
     Route: 058
     Dates: start: 20100210

REACTIONS (1)
  - Osteonecrosis of jaw [Recovered/Resolved]
